FAERS Safety Report 11157339 (Version 2)
Quarter: 2015Q2

REPORT INFORMATION
  Report Type: Spontaneous
  Country: BR (occurrence: BR)
  Receive Date: 20150603
  Receipt Date: 20150624
  Transmission Date: 20150821
  Serious: Yes (Other)
  Sender: FDA-Public Use
  Company Number: BR-PFIZER INC-2010125457

PATIENT
  Age: 52 Year
  Sex: Female
  Weight: 67 kg

DRUGS (9)
  1. ARTROLIV [Concomitant]
     Indication: OSTEOARTHRITIS
     Dosage: UNK
     Dates: start: 201009
  2. CHAMPIX [Suspect]
     Active Substance: VARENICLINE TARTRATE
     Indication: SMOKING CESSATION THERAPY
     Dosage: 1 DF, 1X/DAY
     Route: 048
     Dates: start: 20100920, end: 201009
  3. CHAMPIX [Suspect]
     Active Substance: VARENICLINE TARTRATE
     Dosage: 1 MG, 2X/DAY
     Route: 048
     Dates: start: 201009
  4. CHAMPIX [Suspect]
     Active Substance: VARENICLINE TARTRATE
     Dosage: 1 TABLET (UNSPECIFIED DOSE), 2X/DAY
     Route: 048
     Dates: start: 2011
  5. ATENOLOL. [Concomitant]
     Active Substance: ATENOLOL
     Dosage: 1 TABLET OF 50MG DAILY
  6. HYDROCHLOROTHIAZIDE. [Concomitant]
     Active Substance: HYDROCHLOROTHIAZIDE
     Indication: PRE-ECLAMPSIA
     Dosage: 1 TABLET OF 25 MG, DAILY
     Dates: start: 2003
  7. ALPRAZOLAM. [Concomitant]
     Active Substance: ALPRAZOLAM
     Indication: INSOMNIA
     Dosage: 0.5 MG, AS NEEDED ONLY WHEN PRESENTING WITH INSOMNIA
  8. CHAMPIX [Suspect]
     Active Substance: VARENICLINE TARTRATE
     Dosage: UNK
     Route: 048
     Dates: start: 2013, end: 2013
  9. ATENOLOL. [Concomitant]
     Active Substance: ATENOLOL
     Indication: MITRAL VALVE PROLAPSE
     Dosage: 2 TABLETS OF 25MG (50 MG), DAILY
     Dates: start: 2003

REACTIONS (8)
  - Retching [Not Recovered/Not Resolved]
  - Formication [Unknown]
  - Anxiety [Unknown]
  - Weight decreased [Recovering/Resolving]
  - Blood pressure increased [Unknown]
  - Squamous cell carcinoma [Unknown]
  - Nightmare [Recovered/Resolved]
  - Heart rate increased [Unknown]

NARRATIVE: CASE EVENT DATE: 201009
